FAERS Safety Report 11322540 (Version 1)
Quarter: 2015Q3

REPORT INFORMATION
  Report Type: Spontaneous
  Country: CA (occurrence: CA)
  Receive Date: 20150730
  Receipt Date: 20150730
  Transmission Date: 20151125
  Serious: Yes (Hospitalization)
  Sender: FDA-Public Use
  Company Number: CA-WATSON-2015-15921

PATIENT
  Age: 42 Year
  Sex: Male

DRUGS (6)
  1. CODEINE (UNKNOWN) [Suspect]
     Active Substance: CODEINE
     Indication: INTENTIONAL OVERDOSE
     Dosage: 1200 MG, TOTAL (OVER THE COURSE OF 4 H)
     Route: 048
  2. LORAZEPAM (UNKNOWN) [Suspect]
     Active Substance: LORAZEPAM
     Indication: INTENTIONAL OVERDOSE
     Dosage: 8 MG, TOTAL (OVER THE COURSE OF 4 H)
     Route: 048
  3. ACETAMINOPHEN (UNKNOWN) [Suspect]
     Active Substance: ACETAMINOPHEN
     Indication: INTENTIONAL OVERDOSE
     Dosage: 24000 MG, TOTAL (OVER THE COURSE OF 4 H)
     Route: 048
  4. DIPHENHYDRAMINE HYDROCHLORIDE (UNKNOWN) [Suspect]
     Active Substance: DIPHENHYDRAMINE HYDROCHLORIDE
     Indication: INTENTIONAL OVERDOSE
     Dosage: 600 MG, TOTAL (OVER THE COURSE OF 4 H)
     Route: 048
  5. NAPROXEN (UNKNOWN) [Suspect]
     Active Substance: NAPROXEN
     Indication: INTENTIONAL OVERDOSE
     Dosage: UNK
     Route: 065
  6. RIVAROXABAN [Suspect]
     Active Substance: RIVAROXABAN
     Indication: INTENTIONAL OVERDOSE
     Dosage: 1400 MG, TOTAL (OVER THE COURSE OF 4 H)
     Route: 048

REACTIONS (4)
  - Activated partial thromboplastin time prolonged [Recovered/Resolved]
  - International normalised ratio increased [Unknown]
  - Overdose [Recovered/Resolved]
  - Prothrombin time prolonged [Recovered/Resolved]
